FAERS Safety Report 24056270 (Version 1)
Quarter: 2024Q3

REPORT INFORMATION
  Report Type: Spontaneous
  Country: US (occurrence: None)
  Receive Date: 20240704
  Receipt Date: 20240704
  Transmission Date: 20241017
  Serious: Yes (Hospitalization)
  Sender: Public
  Company Number: None

PATIENT
  Sex: Male

DRUGS (2)
  1. TACROLIMUS [Suspect]
     Active Substance: TACROLIMUS
     Indication: Liver transplant
     Dosage: 1MG EVERY 12 HOURS ORAL?
     Route: 048
     Dates: start: 202201
  2. PROGRAF [Concomitant]
     Active Substance: TACROLIMUS

REACTIONS (2)
  - Bone cancer [None]
  - Lymphoma [None]
